FAERS Safety Report 13257288 (Version 1)
Quarter: 2017Q1

REPORT INFORMATION
  Report Type: Spontaneous
  Country: US (occurrence: US)
  Receive Date: 20170221
  Receipt Date: 20170221
  Transmission Date: 20170428
  Serious: No
  Sender: FDA-Public Use
  Company Number: US-BAYER-2017-033628

PATIENT
  Sex: Female

DRUGS (5)
  1. DONEPEZIL. [Concomitant]
     Active Substance: DONEPEZIL
  2. MULTIPLE VITAMINS [Concomitant]
     Active Substance: VITAMINS
  3. CLARITIN [Suspect]
     Active Substance: LORATADINE
     Dosage: UNK
     Dates: start: 20170219, end: 20170219
  4. VITAMIN D3 [Concomitant]
     Active Substance: CHOLECALCIFEROL
  5. LISINOPRIL. [Concomitant]
     Active Substance: LISINOPRIL

REACTIONS (1)
  - Product use issue [Unknown]
